FAERS Safety Report 11490550 (Version 1)
Quarter: 2015Q3

REPORT INFORMATION
  Report Type: Spontaneous
  Country: IR (occurrence: IR)
  Receive Date: 20150910
  Receipt Date: 20150910
  Transmission Date: 20151125
  Serious: Yes (Hospitalization, Other)
  Sender: FDA-Public Use
  Company Number: IR-PAR PHARMACEUTICAL COMPANIES-2015SCPR014270

PATIENT

DRUGS (2)
  1. IODOQUINOL [Concomitant]
     Active Substance: IODOQUINOL
     Indication: AMOEBIC DYSENTERY
     Dosage: UNK, UNKNOWN
     Route: 065
  2. METRONIDAZOLE. [Suspect]
     Active Substance: METRONIDAZOLE
     Indication: AMOEBIC DYSENTERY
     Dosage: 30 MG/KG, DAILY
     Route: 048

REACTIONS (6)
  - Visual acuity reduced [Recovered/Resolved]
  - Haemolytic uraemic syndrome [Recovered/Resolved]
  - Asterixis [Recovered/Resolved]
  - Ataxia [Recovered/Resolved]
  - Diplopia [Recovered/Resolved]
  - Blindness [Recovered/Resolved]
